FAERS Safety Report 22520717 (Version 2)
Quarter: 2023Q2

REPORT INFORMATION
  Report Type: Spontaneous
  Country: IN (occurrence: IN)
  Receive Date: 20230605
  Receipt Date: 20230626
  Transmission Date: 20230722
  Serious: Yes (Other)
  Sender: FDA-Public Use
  Company Number: IN-PFIZER INC-PV202300095143

PATIENT
  Age: 62 Year
  Sex: Female
  Weight: 49 kg

DRUGS (1)
  1. MINIPRESS [Suspect]
     Active Substance: PRAZOSIN HYDROCHLORIDE
     Indication: Hypertension
     Dosage: 5 MG, 1X/DAY
     Dates: start: 2019, end: 20230525

REACTIONS (3)
  - Foreign body in throat [Unknown]
  - Product physical issue [Unknown]
  - Product solubility abnormal [Unknown]

NARRATIVE: CASE EVENT DATE: 20230501
